FAERS Safety Report 8483283-0 (Version None)
Quarter: 2012Q3

REPORT INFORMATION
  Report Type: 
  Country: None (occurrence: None)
  Receive Date: 20120702
  Receipt Date: 20120615
  Transmission Date: 20120928
  Serious: No
  Sender: FDA-Public Use
  Company Number: US-ASTRAZENECA-2012SE40389

PATIENT
  Sex: Female

DRUGS (1)
  1. NEXIUM [Suspect]
     Indication: GASTRITIS
     Route: 048
     Dates: start: 20120601

REACTIONS (9)
  - BRONCHITIS [None]
  - DIARRHOEA [None]
  - PALPITATIONS [None]
  - NAUSEA [None]
  - MUSCLE SPASMS [None]
  - CONSTIPATION [None]
  - OFF LABEL USE [None]
  - TREMOR [None]
  - WHEEZING [None]
